FAERS Safety Report 20833811 (Version 1)
Quarter: 2022Q2

REPORT INFORMATION
  Report Type: Spontaneous
  Country: FR (occurrence: FR)
  Receive Date: 20220516
  Receipt Date: 20220516
  Transmission Date: 20220721
  Serious: Yes (Hospitalization)
  Sender: FDA-Public Use
  Company Number: None

PATIENT
  Age: 36 Year
  Sex: Male
  Weight: 67 kg

DRUGS (2)
  1. CLINDAMYCIN [Suspect]
     Active Substance: CLINDAMYCIN
     Indication: Osteitis
     Dosage: 600 MG, 3X/DAY
     Route: 048
     Dates: start: 20211018
  2. CIPROFLOXACIN HYDROCHLORIDE [Suspect]
     Active Substance: CIPROFLOXACIN HYDROCHLORIDE
     Indication: Osteitis
     Dosage: 1500 MG, 1X/DAY
     Route: 048
     Dates: start: 20211018

REACTIONS (2)
  - Hepatic cytolysis [Unknown]
  - Neutropenia [Unknown]

NARRATIVE: CASE EVENT DATE: 20211027
